FAERS Safety Report 12666329 (Version 2)
Quarter: 2016Q3

REPORT INFORMATION
  Report Type: Spontaneous
  Country: AR (occurrence: AR)
  Receive Date: 20160818
  Receipt Date: 20160902
  Transmission Date: 20161109
  Serious: Yes (Other)
  Sender: FDA-Public Use
  Company Number: AR-AMGEN-ARGSP2016105356

PATIENT
  Age: 58 Year

DRUGS (3)
  1. ENBREL [Suspect]
     Active Substance: ETANERCEPT
     Indication: RHEUMATOID ARTHRITIS
     Dosage: UNK
     Route: 065
  2. METHOTREXATE (METHOTREXATE SODIUM) [Concomitant]
     Active Substance: METHOTREXATE SODIUM
     Dosage: UNK
  3. LEFLUNOMIDA [Concomitant]
     Active Substance: LEFLUNOMIDE
     Dosage: UNK

REACTIONS (2)
  - Visual field defect [Unknown]
  - Pituitary tumour [Unknown]

NARRATIVE: CASE EVENT DATE: 201501
